FAERS Safety Report 7314352-6 (Version None)
Quarter: 2011Q1

REPORT INFORMATION
  Report Type: 
  Country: None (occurrence: None)
  Receive Date: 20110217
  Receipt Date: 20110217
  Transmission Date: 20110831
  Serious: No
  Sender: FDA-Public Use
  Company Number: None

PATIENT
  Age: 40 Year
  Sex: Male
  Weight: 111 kg

DRUGS (1)
  1. SULFAMETHOXAZOLE AND TRIMETHOPRIM [Suspect]
     Indication: CELLULITIS
     Dosage: 800/160 PO
     Route: 048
     Dates: start: 20101223, end: 20101225

REACTIONS (2)
  - PENILE BLISTER [None]
  - PENILE OEDEMA [None]
